FAERS Safety Report 5097970-8 (Version None)
Quarter: 2006Q3

REPORT INFORMATION
  Report Type: 
  Country: None (occurrence: None)
  Receive Date: 20060905
  Receipt Date: 20060905
  Transmission Date: 20061208
  Serious: No
  Sender: FDA-Public Use
  Company Number: None

PATIENT
  Age: 62 Year
  Sex: Female
  Weight: 63.5036 kg

DRUGS (2)
  1. PREMARIN [Suspect]
     Indication: HORMONE REPLACEMENT THERAPY
     Dosage: ONE PER DAY PO
     Route: 048
     Dates: start: 20060529, end: 20060831
  2. PREMARIN [Suspect]
     Indication: HOT FLUSH
     Dosage: ONE PER DAY PO
     Route: 048
     Dates: start: 20060529, end: 20060831

REACTIONS (9)
  - BLOOD PRESSURE DECREASED [None]
  - DEPRESSION [None]
  - EMOTIONAL DISORDER [None]
  - FATIGUE [None]
  - HOT FLUSH [None]
  - INSOMNIA [None]
  - MOOD ALTERED [None]
  - NIGHT SWEATS [None]
  - PHARMACEUTICAL PRODUCT COMPLAINT [None]
